FAERS Safety Report 5677086-X (Version None)
Quarter: 2008Q1

REPORT INFORMATION
  Report Type: 
  Country: None (occurrence: None)
  Receive Date: 20080318
  Receipt Date: 20080313
  Transmission Date: 20080703
  Serious: Yes (Hospitalization)
  Sender: FDA-Public Use
  Company Number: 2008SP003415

PATIENT
  Age: 56 Year
  Sex: Female
  Weight: 111.1313 kg

DRUGS (2)
  1. PEG-INTRON [Suspect]
     Indication: HEPATITIS C
     Dosage: 150 MCG; QW; SC
     Route: 058
     Dates: start: 20071211, end: 20080124
  2. REBETOL [Suspect]
     Indication: HEPATITIS C
     Dosage: 1400 MG; QD; PO
     Route: 048
     Dates: start: 20071211, end: 20080124

REACTIONS (5)
  - ANAEMIA [None]
  - CHEST PAIN [None]
  - DYSPNOEA EXERTIONAL [None]
  - HAEMORRHAGE [None]
  - PANCYTOPENIA [None]
